FAERS Safety Report 18239274 (Version 4)
Quarter: 2020Q4

REPORT INFORMATION
  Report Type: Spontaneous
  Country: US (occurrence: US)
  Receive Date: 20200907
  Receipt Date: 20201230
  Transmission Date: 20210113
  Serious: Yes (Other)
  Sender: FDA-Public Use
  Company Number: US-PFIZER INC-2020343730

PATIENT
  Age: 70 Year
  Sex: Female

DRUGS (3)
  1. XELJANZ XR [Suspect]
     Active Substance: TOFACITINIB CITRATE
     Indication: RHEUMATOID ARTHRITIS
     Dosage: 11 MG, 1X/DAY
     Route: 048
     Dates: start: 2015
  2. IBUPROFEN. [Concomitant]
     Active Substance: IBUPROFEN
     Dosage: UNK
  3. PREDNISONE. [Concomitant]
     Active Substance: PREDNISONE
     Dosage: 5 MG, 2X/DAY

REACTIONS (12)
  - Intervertebral disc protrusion [Unknown]
  - Bursitis [Unknown]
  - Gait disturbance [Unknown]
  - Muscle rupture [Unknown]
  - Intervertebral disc space narrowing [Unknown]
  - Product dose omission issue [Unknown]
  - Osteoarthritis [Unknown]
  - Back disorder [Unknown]
  - Back pain [Unknown]
  - Musculoskeletal discomfort [Unknown]
  - Sciatica [Unknown]
  - Sensitivity to weather change [Unknown]

NARRATIVE: CASE EVENT DATE: 2020
